FAERS Safety Report 4754814-9 (Version None)
Quarter: 2005Q3

REPORT INFORMATION
  Report Type: 
  Country: None (occurrence: None)
  Receive Date: 20050825
  Receipt Date: 20050804
  Transmission Date: 20060218
  Serious: Yes (Death)
  Sender: FDA-Public Use
  Company Number: CERZ-10973

PATIENT
  Age: 20 Month
  Sex: Female
  Weight: 6.5 kg

DRUGS (1)
  1. CEREZYME [Suspect]
     Indication: GAUCHER'S DISEASE
     Dosage: 60 U/KG ONCE IV
     Route: 042
     Dates: start: 20040115, end: 20040115

REACTIONS (4)
  - DISEASE PROGRESSION [None]
  - DYSPNOEA [None]
  - GAUCHER'S DISEASE [None]
  - PRODUCTIVE COUGH [None]
